FAERS Safety Report 4911128-1 (Version None)
Quarter: 2006Q1

REPORT INFORMATION
  Report Type: 
  Country: None (occurrence: None)
  Receive Date: 20060209
  Receipt Date: 20060127
  Transmission Date: 20060701
  Serious: Yes (Hospitalization, Other)
  Sender: FDA-Public Use
  Company Number: 2006005585

PATIENT
  Age: 80 Year
  Sex: Female

DRUGS (1)
  1. ZITHROMAX [Suspect]
     Indication: URINARY TRACT INFECTION
     Dosage: ORAL; 4 WEEKS AGO
     Route: 048

REACTIONS (9)
  - AORTIC ARTERIOSCLEROSIS [None]
  - AUTOIMMUNE HEPATITIS [None]
  - BLOOD GLUCOSE INCREASED [None]
  - CARDIOMEGALY [None]
  - DRUG HYPERSENSITIVITY [None]
  - ESCHERICHIA INFECTION [None]
  - GASTRITIS EROSIVE [None]
  - PROTEUS INFECTION [None]
  - PSYCHOTIC DISORDER DUE TO A GENERAL MEDICAL CONDITION [None]
